FAERS Safety Report 5206924-X (Version None)
Quarter: 2007Q1

REPORT INFORMATION
  Report Type: 
  Country: None (occurrence: None)
  Receive Date: 20070105
  Receipt Date: 20070105
  Transmission Date: 20070707
  Serious: Yes (Hospitalization)
  Sender: FDA-Public Use
  Company Number: None

PATIENT
  Age: 46 Year
  Sex: Male

DRUGS (1)
  1. HUMULIN 70/30 [Suspect]
     Indication: DIABETES MELLITUS INSULIN-DEPENDENT
     Dosage: 50 UNITS Q AM + HS SQ
     Route: 058

REACTIONS (10)
  - ABASIA [None]
  - BLOOD GLUCOSE INCREASED [None]
  - BLOOD PRESSURE SYSTOLIC INCREASED [None]
  - CREPITATIONS [None]
  - DYSPNOEA EXERTIONAL [None]
  - GLUCOSE URINE PRESENT [None]
  - GOUT [None]
  - NO THERAPEUTIC RESPONSE [None]
  - OEDEMA PERIPHERAL [None]
  - PROTEIN URINE PRESENT [None]
